FAERS Safety Report 23265800 (Version 1)
Quarter: 2023Q4

REPORT INFORMATION
  Report Type: Spontaneous
  Country: US (occurrence: US)
  Receive Date: 20231206
  Receipt Date: 20231206
  Transmission Date: 20240109
  Serious: No
  Sender: FDA-Public Use
  Company Number: US-MICRO LABS LIMITED-ML2023-06682

PATIENT
  Age: 80 Year
  Sex: Female

DRUGS (2)
  1. DORZOLAMIDE [Suspect]
     Active Substance: DORZOLAMIDE
     Indication: Glaucoma
     Route: 047
  2. XANTHINE [Concomitant]
     Active Substance: XANTHINE
     Indication: Product used for unknown indication

REACTIONS (3)
  - Intraocular pressure increased [Unknown]
  - Eye pain [Unknown]
  - Product dose omission issue [Unknown]
